FAERS Safety Report 21744803 (Version 1)
Quarter: 2022Q4

REPORT INFORMATION
  Report Type: Spontaneous
  Country: FR (occurrence: FR)
  Receive Date: 20221219
  Receipt Date: 20221219
  Transmission Date: 20230112
  Serious: Yes (Other)
  Sender: FDA-Public Use
  Company Number: FR-BAXTER-2022BAX026217

PATIENT
  Age: 71 Year
  Sex: Male

DRUGS (3)
  1. CYCLOPHOSPHAMIDE [Suspect]
     Active Substance: CYCLOPHOSPHAMIDE
     Indication: Product used for unknown indication
     Dosage: UNK (550 MG/DOSE 7 DOSE(S)/WEEK 1 WEEK(S)/CYCLE, TREATMENT LINE NUMBER 3, TREATMENT DURATION: 2.2 MO
     Route: 065
     Dates: end: 20201215
  2. DEXAMETHASONE [Suspect]
     Active Substance: DEXAMETHASONE
     Indication: Product used for unknown indication
     Dosage: UNK (40 MG/DOSE 1 DOSE(S)/WEEK 4 WEEK(S)/CYCLE, TREATMENT LINE NUMBER 3, TREATMENT DURATION: 2.2 MON
     Route: 065
     Dates: end: 20201215
  3. BORTEZOMIB [Suspect]
     Active Substance: BORTEZOMIB
     Indication: Product used for unknown indication
     Dosage: UNK (1.3 MG/M2/DOSE 1 DOSESE(S)/WEEK 4 WEEK(S)/CYCLE, TREATMENT LINE NUMBER 3, TREATMENT DURATION: 2
     Route: 065
     Dates: end: 20201215

REACTIONS (1)
  - Haematotoxicity [Unknown]

NARRATIVE: CASE EVENT DATE: 20201215
